FAERS Safety Report 18954290 (Version 2)
Quarter: 2021Q1

REPORT INFORMATION
  Report Type: Spontaneous
  Country: US (occurrence: US)
  Receive Date: 20210301
  Receipt Date: 20210322
  Transmission Date: 20210420
  Serious: Yes (Hospitalization)
  Sender: FDA-Public Use
  Company Number: US-PFIZER INC-2021204513

PATIENT
  Age: 80 Year
  Sex: Male

DRUGS (1)
  1. INLYTA [Suspect]
     Active Substance: AXITINIB
     Indication: RENAL CANCER
     Dosage: 5 MG, UNK

REACTIONS (12)
  - Hypertension [Unknown]
  - Fatigue [Unknown]
  - Dizziness [Unknown]
  - Bone pain [Unknown]
  - Arthralgia [Unknown]
  - Product dose omission in error [Unknown]
  - Oral mucosal blistering [Unknown]
  - Gait disturbance [Unknown]
  - Decreased appetite [Unknown]
  - Headache [Unknown]
  - Stomatitis [Unknown]
  - Nausea [Unknown]

NARRATIVE: CASE EVENT DATE: 20210214
